FAERS Safety Report 20574079 (Version 1)
Quarter: 2022Q1

REPORT INFORMATION
  Report Type: Spontaneous
  Country: FR (occurrence: FR)
  Receive Date: 20220309
  Receipt Date: 20220309
  Transmission Date: 20220423
  Serious: Yes (Other)
  Sender: FDA-Public Use
  Company Number: None

PATIENT
  Age: 57 Year
  Sex: Female
  Weight: 66 kg

DRUGS (12)
  1. CYTARABINE [Suspect]
     Active Substance: CYTARABINE
     Indication: Chronic myeloid leukaemia
     Dosage: 336 MG, 1X/DAY
     Route: 042
     Dates: start: 20220111, end: 20220116
  2. OFLOXACIN [Suspect]
     Active Substance: OFLOXACIN
     Indication: Ear infection
     Dosage: 2 DF, 1X/DAY
     Route: 001
     Dates: start: 20220121, end: 20220128
  3. ONDANSETRON [Suspect]
     Active Substance: ONDANSETRON
     Dosage: 8 MG, ALTERNATE DAY
     Route: 042
     Dates: start: 20220112, end: 20220117
  4. POTASSIUM CHLORIDE [Suspect]
     Active Substance: POTASSIUM CHLORIDE
     Indication: Hypokalaemia
     Dosage: 1200 MG, 1X/DAY
     Route: 048
     Dates: start: 20220121, end: 20220124
  5. MOVICOL [Suspect]
     Active Substance: POLYETHYLENE GLYCOL 3350\POTASSIUM CHLORIDE\SODIUM BICARBONATE\SODIUM CHLORIDE
     Indication: Constipation
     Dosage: 1 DF, 1X/DAY
     Route: 048
     Dates: start: 20220108, end: 20220129
  6. CERUBIDINE [Suspect]
     Active Substance: DAUNORUBICIN HYDROCHLORIDE
     Indication: Chronic myeloid leukaemia
     Dosage: 2 DF, 1X/DAY
     Route: 042
     Dates: start: 20220111, end: 20220113
  7. PIPERACILLIN SODIUM\TAZOBACTAM SODIUM [Concomitant]
     Active Substance: PIPERACILLIN SODIUM\TAZOBACTAM SODIUM
  8. MINERAL OIL [Concomitant]
     Active Substance: MINERAL OIL
  9. POSACONAZOLE [Concomitant]
     Active Substance: POSACONAZOLE
  10. HYDROXYZINE HYDROCHLORIDE [Concomitant]
     Active Substance: HYDROXYZINE HYDROCHLORIDE
  11. DEXAMETHASONE SODIUM PHOSPHATE\NEOMYCIN SULFATE [Concomitant]
     Active Substance: DEXAMETHASONE SODIUM PHOSPHATE\NEOMYCIN SULFATE
  12. TRAMADOL HYDROCHLORIDE [Concomitant]
     Active Substance: TRAMADOL HYDROCHLORIDE

REACTIONS (1)
  - Rash maculo-papular [Recovering/Resolving]

NARRATIVE: CASE EVENT DATE: 20220124
